FAERS Safety Report 5638912-3 (Version None)
Quarter: 2008Q1

REPORT INFORMATION
  Report Type: 
  Country: None (occurrence: None)
  Receive Date: 20080225
  Receipt Date: 20080225
  Transmission Date: 20080703
  Serious: Yes (Life-Threatening, Hospitalization)
  Sender: FDA-Public Use
  Company Number: None

PATIENT
  Age: 39 Year
  Sex: Male
  Weight: 92.9874 kg

DRUGS (2)
  1. ALPRAZOLAM [Suspect]
     Indication: DEPRESSION
     Dosage: ALPRAZOLAM  1 X DAY  PO
     Route: 048
     Dates: start: 20000105, end: 20000712
  2. FLUOXETINE [Suspect]
     Indication: ANXIETY
     Dosage: FLUOXETEIN  2 - 3 X DAY  PO
     Route: 048
     Dates: start: 20000105, end: 20000712

REACTIONS (1)
  - TYPE 2 DIABETES MELLITUS [None]
